FAERS Safety Report 5918216-1 (Version None)
Quarter: 2008Q4

REPORT INFORMATION
  Report Type: 
  Country: None (occurrence: None)
  Receive Date: 20081014
  Receipt Date: 20081013
  Transmission Date: 20090506
  Serious: Yes (Other)
  Sender: FDA-Public Use
  Company Number: US-GENENTECH-269385

PATIENT
  Sex: Male
  Weight: 129.25 kg

DRUGS (1)
  1. RAPTIVA [Suspect]
     Indication: PSORIASIS
     Dosage: 1.2 ML, 1/WEEK
     Route: 058
     Dates: start: 20070417, end: 20081003

REACTIONS (1)
  - PARKINSON'S DISEASE [None]
